FAERS Safety Report 6880882-4 (Version None)
Quarter: 2010Q3

REPORT INFORMATION
  Report Type: 
  Country: None (occurrence: None)
  Receive Date: 20100728
  Receipt Date: 20100726
  Transmission Date: 20110219
  Serious: Yes (Hospitalization, Other)
  Sender: FDA-Public Use
  Company Number: US-BRISTOL-MYERS SQUIBB COMPANY-12976320

PATIENT
  Age: 59 Year
  Sex: Male
  Weight: 93 kg

DRUGS (9)
  1. PRAVACHOL [Suspect]
     Indication: BLOOD CHOLESTEROL INCREASED
     Route: 048
     Dates: start: 20041124, end: 20050301
  2. MULTI-VITAMINS [Concomitant]
  3. IBUPROFEN TABLETS [Concomitant]
     Indication: PAIN
  4. LISINOPRIL [Concomitant]
     Indication: HYPERCHOLESTEROLAEMIA
  5. FLEXERIL [Concomitant]
  6. HYDROCHLOROTHIAZIDE [Concomitant]
  7. NORCO [Concomitant]
     Dosage: DOSAGE FORM = 10 MG/325MG
  8. TRICOR [Concomitant]
     Indication: HYPERCHOLESTEROLAEMIA
  9. TRICOR [Concomitant]
     Indication: HYPERLIPIDAEMIA

REACTIONS (10)
  - GINGIVAL DISORDER [None]
  - INTERVERTEBRAL DISC PROTRUSION [None]
  - MULTIPLE FRACTURES [None]
  - MUSCLE ATROPHY [None]
  - MUSCLE STRAIN [None]
  - MUSCULOSKELETAL PAIN [None]
  - PAIN IN EXTREMITY [None]
  - RENAL PAIN [None]
  - RHABDOMYOLYSIS [None]
  - URINARY TRACT DISORDER [None]
